FAERS Safety Report 11150907 (Version 3)
Quarter: 2015Q3

REPORT INFORMATION
  Report Type: Spontaneous
  Country: US (occurrence: US)
  Receive Date: 20150601
  Receipt Date: 20150729
  Transmission Date: 20151125
  Serious: Yes (Other)
  Sender: FDA-Public Use
  Company Number: US-BAYER-2015-280353

PATIENT
  Age: 30 Year
  Sex: Female
  Weight: 129.71 kg

DRUGS (2)
  1. MIRENA [Suspect]
     Active Substance: LEVONORGESTREL
     Indication: CONTRACEPTION
     Dosage: 20 MCG/24HR, CONT
     Route: 015
     Dates: start: 20150423, end: 20150609
  2. MIRENA [Suspect]
     Active Substance: LEVONORGESTREL
     Indication: CONTRACEPTION
     Dosage: 20 MCG/24HR, CONT
     Route: 015
     Dates: start: 20150609, end: 20150708

REACTIONS (12)
  - Device dislocation [Recovered/Resolved]
  - Cervical friability [Recovered/Resolved]
  - Post procedural discomfort [None]
  - Ovarian cyst [None]
  - Procedural pain [None]
  - Genital haemorrhage [None]
  - Procedural pain [None]
  - Device expulsion [Recovered/Resolved]
  - Device dislocation [Recovered/Resolved]
  - Device physical property issue [None]
  - Abdominal pain lower [None]
  - Abdominal pain lower [None]

NARRATIVE: CASE EVENT DATE: 2015
